FAERS Safety Report 6417000-2 (Version None)
Quarter: 2009Q4

REPORT INFORMATION
  Report Type: 
  Country: None (occurrence: None)
  Receive Date: 20091027
  Receipt Date: 20090917
  Transmission Date: 20100525
  Serious: No
  Sender: FDA-Public Use
  Company Number: US-ALLERGAN-0913107US

PATIENT
  Sex: Female

DRUGS (2)
  1. ALPHAGAN [Suspect]
     Indication: DRUG USE FOR UNKNOWN INDICATION
     Route: 047
  2. VITAMINS NOS [Concomitant]

REACTIONS (1)
  - CONJUNCTIVITIS INFECTIVE [None]
